FAERS Safety Report 24080174 (Version 1)
Quarter: 2024Q3

REPORT INFORMATION
  Report Type: Spontaneous
  Country: US (occurrence: US)
  Receive Date: 20240711
  Receipt Date: 20240711
  Transmission Date: 20241016
  Serious: Yes (Death, Other)
  Sender: VERTEX
  Company Number: US-VERTEX PHARMACEUTICALS-2024-011036

PATIENT

DRUGS (1)
  1. KALYDECO [Suspect]
     Active Substance: IVACAFTOR
     Indication: Cystic fibrosis
     Dosage: 150 MG
     Route: 048

REACTIONS (3)
  - Death [Fatal]
  - Lung transplant [Unknown]
  - Forced expiratory volume decreased [Unknown]
